FAERS Safety Report 18814267 (Version 1)
Quarter: 2021Q1

REPORT INFORMATION
  Report Type: Spontaneous
  Country: NO (occurrence: NO)
  Receive Date: 20210201
  Receipt Date: 20210201
  Transmission Date: 20210419
  Serious: Yes (Hospitalization, Disabling, Other)
  Sender: FDA-Public Use
  Company Number: NO-TEVA-2021-NO-1874265

PATIENT
  Age: 17 Year
  Sex: Female
  Weight: 69 kg

DRUGS (2)
  1. ESCITALOPRAM ACTAVIS TAB 10 MG [Suspect]
     Active Substance: ESCITALOPRAM OXALATE
     Indication: DEPRESSION
     Dosage: UNIT DOSE 15 MG ,10 MG + 5MG ONCE DAILY,?FOR ACTIVE INGREDIENT ESCITALOPRAM THE STRENGTH IS 5 MILLIG
     Dates: start: 2016, end: 202001
  2. ESCITALOPRAM ACTAVIS TAB 10 MG [Suspect]
     Active Substance: ESCITALOPRAM OXALATE
     Indication: ANXIETY

REACTIONS (19)
  - Photophobia [Not Recovered/Not Resolved]
  - Dysmenorrhoea [Recovering/Resolving]
  - Menorrhagia [Unknown]
  - Alopecia [Unknown]
  - Thirst [Unknown]
  - Acne [Recovered/Resolved]
  - Rash erythematous [Recovered/Resolved]
  - Decreased appetite [Unknown]
  - Dyspnoea [Recovered/Resolved with Sequelae]
  - Victim of sexual abuse [Unknown]
  - Oropharyngeal pain [Unknown]
  - Suicidal ideation [Unknown]
  - Headache [Not Recovered/Not Resolved]
  - Dizziness [Not Recovered/Not Resolved]
  - Hyperacusis [Not Recovered/Not Resolved]
  - Nausea [Unknown]
  - Fatigue [Recovering/Resolving]
  - Social problem [Unknown]
  - Somnolence [Unknown]

NARRATIVE: CASE EVENT DATE: 2016
